FAERS Safety Report 8988364 (Version 1)
Quarter: 2012Q4

REPORT INFORMATION
  Report Type: Spontaneous
  Country: US (occurrence: None)
  Receive Date: 20121220
  Receipt Date: 20121220
  Transmission Date: 20130627
  Serious: Yes (Other)
  Sender: FDA-Public Use
  Company Number: None

PATIENT
  Age: 65 Year
  Sex: Male
  Weight: 90.72 kg

DRUGS (1)
  1. AZITHROMYCIN Z-PAC [Suspect]
     Indication: UPPER RESPIRATORY TRACT  INFECTION
     Dosage: 1 tablet q day  x5 days  po
     Route: 048
     Dates: start: 20121201, end: 20121204

REACTIONS (4)
  - Nausea [None]
  - Weight decreased [None]
  - Dysgeusia [None]
  - Hypophagia [None]
